FAERS Safety Report 20412401 (Version 7)
Quarter: 2024Q4

REPORT INFORMATION
  Report Type: Spontaneous
  Country: US (occurrence: US)
  Receive Date: 20220201
  Receipt Date: 20241120
  Transmission Date: 20250115
  Serious: Yes (Death, Other)
  Sender: PFIZER
  Company Number: US-PFIZER INC-202200113613

PATIENT
  Age: 80 Year
  Sex: Male

DRUGS (2)
  1. IBRANCE [Suspect]
     Active Substance: PALBOCICLIB
     Indication: Breast cancer male
     Dosage: ONCE DAILY FOR 21 DAYS WITH 7 DAYS OFF EVERY 28 DAYS
     Route: 048
  2. IBRANCE [Suspect]
     Active Substance: PALBOCICLIB
     Dosage: ONCE DAILY 21 DAYS, 7 DAYS OFF
     Route: 048

REACTIONS (5)
  - Death [Fatal]
  - Weight decreased [Unknown]
  - COVID-19 [Unknown]
  - Neoplasm progression [Unknown]
  - Full blood count decreased [Unknown]

NARRATIVE: CASE EVENT DATE: 20210101
